FAERS Safety Report 9413927 (Version 1)
Quarter: 2013Q3

REPORT INFORMATION
  Report Type: Spontaneous
  Country: DE (occurrence: DE)
  Receive Date: 20130723
  Receipt Date: 20130723
  Transmission Date: 20140515
  Serious: Yes (Other)
  Sender: FDA-Public Use
  Company Number: DE-RANBAXY-2013RR-71184

PATIENT
  Age: 52 Year
  Sex: Female
  Weight: 61 kg

DRUGS (3)
  1. SUMATRIPTAN [Suspect]
     Indication: MIGRAINE
     Dosage: 50
     Route: 048
     Dates: start: 20130504
  2. METOPROLOL SUCCINATE [Concomitant]
     Indication: HYPERTENSION
     Dosage: 47.5
     Route: 048
     Dates: start: 20050601
  3. VIGANTOL OEL [Concomitant]
     Indication: VITAMIN D DEFICIENCY
     Dosage: ^1 DROP^
     Route: 048
     Dates: start: 20130304

REACTIONS (4)
  - Aphasia [Recovered/Resolved]
  - Blood pressure increased [Recovered/Resolved]
  - Panic reaction [Recovered/Resolved]
  - Orthostatic intolerance [Recovered/Resolved]
